FAERS Safety Report 10302823 (Version 2)
Quarter: 2014Q3

REPORT INFORMATION
  Report Type: Spontaneous
  Country: BR (occurrence: None)
  Receive Date: 20140708
  Receipt Date: 20140804
  Transmission Date: 20150326
  Serious: Yes (Other)
  Sender: FDA-Public Use
  Company Number: 2013SA119248

PATIENT
  Age: 23 Year
  Sex: Female
  Weight: 70 kg

DRUGS (3)
  1. LANTUS [Suspect]
     Active Substance: INSULIN GLARGINE
     Indication: TYPE 1 DIABETES MELLITUS
     Dosage: 3 TIMES A DAY; SUBCUTANEOUS
     Route: 058
     Dates: start: 2004
  2. FOLIC ACID. [Concomitant]
     Active Substance: FOLIC ACID
  3. DEVICE NOS [Suspect]
     Active Substance: DEVICE
     Indication: DEVICE THERAPY

REACTIONS (11)
  - Caesarean section [None]
  - Pregnancy [None]
  - Syringe issue [None]
  - Exposure during pregnancy [None]
  - Toxoplasmosis [None]
  - Hypoglycaemia [None]
  - Hyperglycaemia [None]
  - Maternal exposure during pregnancy [None]
  - Gestational hypertension [None]
  - Injection site pain [None]
  - Off label use [None]

NARRATIVE: CASE EVENT DATE: 2013
